FAERS Safety Report 14764232 (Version 1)
Quarter: 2018Q2

REPORT INFORMATION
  Report Type: Spontaneous
  Country: MY (occurrence: MY)
  Receive Date: 20180416
  Receipt Date: 20180416
  Transmission Date: 20180711
  Serious: Yes (Death, Other)
  Sender: FDA-Public Use
  Company Number: IND-MY-009507513-1804MYS005596

PATIENT
  Age: 70 Year
  Sex: Male

DRUGS (8)
  1. GLUCOPHAGE [Concomitant]
     Active Substance: METFORMIN HYDROCHLORIDE
     Indication: HYPERCHOLESTEROLAEMIA
  2. LIPITOR [Concomitant]
     Active Substance: ATORVASTATIN CALCIUM
     Indication: DIABETES MELLITUS
  3. GLUCOPHAGE [Concomitant]
     Active Substance: METFORMIN HYDROCHLORIDE
     Indication: DIABETES MELLITUS
     Route: 048
  4. MICARDIS [Concomitant]
     Active Substance: TELMISARTAN
     Indication: DIABETES MELLITUS
  5. ARCOXIA [Suspect]
     Active Substance: ETORICOXIB
     Indication: PAIN
     Dosage: 120 MG, QD
     Route: 048
     Dates: start: 2014, end: 2014
  6. DIAMICRON [Concomitant]
     Active Substance: GLICLAZIDE
  7. MICARDIS [Concomitant]
     Active Substance: TELMISARTAN
     Indication: HYPERCHOLESTEROLAEMIA
  8. LIPITOR [Concomitant]
     Active Substance: ATORVASTATIN CALCIUM
     Indication: HYPERCHOLESTEROLAEMIA

REACTIONS (2)
  - Dry mouth [Recovered/Resolved]
  - Death [Fatal]

NARRATIVE: CASE EVENT DATE: 2014
